FAERS Safety Report 5247959-0 (Version None)
Quarter: 2007Q1

REPORT INFORMATION
  Report Type: 
  Country: None (occurrence: None)
  Receive Date: 20070227
  Receipt Date: 20070212
  Transmission Date: 20070707
  Serious: Yes (Other)
  Sender: FDA-Public Use
  Company Number: CH-MERCK-0702CHE00012

PATIENT
  Age: 15 Year
  Sex: Female
  Weight: 47 kg

DRUGS (8)
  1. CANCIDAS [Suspect]
     Indication: BRONCHOPULMONARY ASPERGILLOSIS
     Route: 042
     Dates: start: 20060920
  2. VORICONAZOLE [Suspect]
     Indication: BRONCHOPULMONARY ASPERGILLOSIS
     Route: 048
     Dates: start: 20060920
  3. SULFAMETHOXAZOLE AND TRIMETHOPRIM [Concomitant]
     Route: 048
  4. MERCAPTOPURINE [Concomitant]
     Indication: ACUTE LYMPHOCYTIC LEUKAEMIA
     Route: 042
  5. METHOTREXATE [Concomitant]
     Indication: ACUTE LYMPHOCYTIC LEUKAEMIA
     Route: 042
  6. INDOMETHACIN [Concomitant]
     Route: 048
  7. ENOXAPARIN SODIUM [Concomitant]
     Route: 058
  8. OMEPRAZOLE [Concomitant]
     Route: 048

REACTIONS (3)
  - ARTHRITIS [None]
  - EXTRASKELETAL OSSIFICATION [None]
  - POLYSEROSITIS [None]
